FAERS Safety Report 26094355 (Version 2)
Quarter: 2025Q4

REPORT INFORMATION
  Report Type: Spontaneous
  Country: EU (occurrence: EU)
  Receive Date: 20251126
  Receipt Date: 20251219
  Transmission Date: 20260118
  Serious: Yes (Other)
  Sender: IDORSIA PHARMACEUTICALS
  Company Number: EU-IDORSIA-012628-2025-DE

PATIENT
  Age: 67 Year
  Sex: Male

DRUGS (3)
  1. QUVIVIQ [Suspect]
     Active Substance: DARIDOREXANT
     Indication: Insomnia
     Dosage: 50 MG, QD
     Route: 048
  2. QUVIVIQ [Suspect]
     Active Substance: DARIDOREXANT
     Dosage: 25 MG, QD
     Route: 048
  3. AMLODIPINE AND OLMESARTAN MEDOXOMIL [Concomitant]
     Active Substance: AMLODIPINE BESYLATE\OLMESARTAN MEDOXOMIL
     Indication: Blood pressure abnormal

REACTIONS (1)
  - Respiratory depression [Recovered/Resolved]

NARRATIVE: CASE EVENT DATE: 20250701
